FAERS Safety Report 19279840 (Version 4)
Quarter: 2021Q4

REPORT INFORMATION
  Report Type: Report from Study
  Country: US (occurrence: US)
  Receive Date: 20210520
  Receipt Date: 20211012
  Transmission Date: 20220303
  Serious: Yes (Other)
  Sender: FDA-Public Use
  Company Number: US-KYOWAKIRIN-2021BKK007719

PATIENT

DRUGS (2)
  1. CRYSVITA [Suspect]
     Active Substance: BUROSUMAB-TWZA
     Indication: Hereditary hypophosphataemic rickets
     Dosage: 70 MG, ONCE A MONTH
     Route: 065
     Dates: start: 20200214
  2. CRYSVITA [Suspect]
     Active Substance: BUROSUMAB-TWZA
     Dosage: UNK, ONCE EVERY 28 DAYS
     Route: 065
     Dates: start: 2021, end: 2021

REACTIONS (14)
  - Restless legs syndrome [Recovered/Resolved]
  - Condition aggravated [Recovered/Resolved]
  - Stress fracture [Unknown]
  - Frustration tolerance decreased [Unknown]
  - Emotional disorder [Unknown]
  - Pain in extremity [Unknown]
  - Road traffic accident [Unknown]
  - Joint swelling [Unknown]
  - Fatigue [Unknown]
  - Memory impairment [Recovering/Resolving]
  - Sleep deficit [Recovering/Resolving]
  - Crying [Unknown]
  - Somnolence [Unknown]
  - Sleep disorder [Recovering/Resolving]

NARRATIVE: CASE EVENT DATE: 20210701
